FAERS Safety Report 5188815-6 (Version None)
Quarter: 2006Q4

REPORT INFORMATION
  Report Type: 
  Country: None (occurrence: None)
  Receive Date: 20061221
  Receipt Date: 20061218
  Transmission Date: 20070319
  Serious: Yes (Hospitalization)
  Sender: FDA-Public Use
  Company Number: SE-GILEAD-2006-0010862

PATIENT
  Age: 42 Year
  Sex: Female

DRUGS (4)
  1. TRUVADA [Suspect]
     Route: 048
  2. REYATAZ [Suspect]
     Route: 048
  3. NORVIR [Suspect]
     Route: 048
  4. IMOVANE [Concomitant]

REACTIONS (2)
  - ABORTION SPONTANEOUS [None]
  - DRUG EXPOSURE DURING PREGNANCY [None]
